FAERS Safety Report 23537357 (Version 1)
Quarter: 2024Q1

REPORT INFORMATION
  Report Type: Spontaneous
  Country: KR (occurrence: None)
  Receive Date: 20240219
  Receipt Date: 20240219
  Transmission Date: 20240410
  Serious: Yes (Death, Other)
  Sender: FDA-Public Use
  Company Number: 2024A039340

PATIENT
  Age: 17119 Day
  Sex: Female

DRUGS (1)
  1. LYNPARZA [Suspect]
     Active Substance: OLAPARIB
     Dosage: 150MG / 112TAB150.0MG UNKNOWN
     Route: 048
     Dates: start: 20230905

REACTIONS (2)
  - Metastasis [Fatal]
  - Breast cancer [Unknown]

NARRATIVE: CASE EVENT DATE: 20231220
